FAERS Safety Report 21350688 (Version 1)
Quarter: 2022Q3

REPORT INFORMATION
  Report Type: Spontaneous
  Country: JP (occurrence: JP)
  Receive Date: 20220919
  Receipt Date: 20220919
  Transmission Date: 20221026
  Serious: Yes (Other)
  Sender: FDA-Public Use
  Company Number: JP-OTSUKA-2022_045191

PATIENT
  Age: 69 Year
  Sex: Female

DRUGS (2)
  1. ABILIFY [Suspect]
     Active Substance: ARIPIPRAZOLE
     Indication: Schizophrenia
     Dosage: 300/SHOT
     Route: 030
     Dates: start: 20220831, end: 20220831
  2. BIPERIDEN HYDROCHLORIDE [Concomitant]
     Active Substance: BIPERIDEN HYDROCHLORIDE
     Indication: Product used for unknown indication
     Dosage: 3MG/DAY
     Route: 048
     Dates: start: 20220822

REACTIONS (2)
  - Schizophrenia [Unknown]
  - Hypertension [Unknown]

NARRATIVE: CASE EVENT DATE: 20220831
